FAERS Safety Report 6544918-2 (Version None)
Quarter: 2010Q1

REPORT INFORMATION
  Report Type: 
  Country: None (occurrence: None)
  Receive Date: 20100121
  Receipt Date: 20100111
  Transmission Date: 20100710
  Serious: Yes (Hospitalization)
  Sender: FDA-Public Use
  Company Number: US-ELI_LILLY_AND_COMPANY-US201001003671

PATIENT
  Sex: Female

DRUGS (9)
  1. FORTEO [Suspect]
     Indication: OSTEOPOROSIS
     Dosage: 20 UG, DAILY (1/D)
     Dates: start: 20091101
  2. CALCIUM W/VITAMIN D NOS [Concomitant]
  3. GLUCOSAMINE [Concomitant]
  4. CHONDROITIN [Concomitant]
  5. CENTRUM [Concomitant]
  6. METANX [Concomitant]
  7. CLONAZEPAM [Concomitant]
     Indication: NERVOUSNESS
     Dosage: 1 MG, 2/D
  8. GABAPENTIN [Concomitant]
     Dosage: 300 MG, 3/D
  9. LISINOPRIL HYDROCHLORTHIAZID [Concomitant]

REACTIONS (7)
  - ANXIETY [None]
  - CONSTIPATION [None]
  - DEHYDRATION [None]
  - DIARRHOEA [None]
  - HAEMATOCHEZIA [None]
  - MALAISE [None]
  - VISUAL IMPAIRMENT [None]
